FAERS Safety Report 22897702 (Version 3)
Quarter: 2024Q1

REPORT INFORMATION
  Report Type: Spontaneous
  Country: US (occurrence: US)
  Receive Date: 20230902
  Receipt Date: 20240320
  Transmission Date: 20240409
  Serious: No
  Sender: FDA-Public Use
  Company Number: US-SANDOZ-SDZ2023US021648

PATIENT
  Sex: Male
  Weight: 43.084 kg

DRUGS (4)
  1. OMNITROPE [Suspect]
     Active Substance: SOMATROPIN
     Dosage: UNK
     Route: 065
  2. OMNITROPE [Suspect]
     Active Substance: SOMATROPIN
     Dosage: UNK
     Route: 065
  3. OMNITROPE [Suspect]
     Active Substance: SOMATROPIN
     Indication: Product used for unknown indication
     Dosage: 1.5 MG 2 DOSE EVERY N/A N/A
     Route: 058
     Dates: start: 20230815, end: 20230816
  4. OMNITROPE [Suspect]
     Active Substance: SOMATROPIN
     Indication: Product used for unknown indication
     Dosage: 1.5 MG 2 DOSE EVERY N/A N/A
     Route: 058
     Dates: start: 20230815, end: 20230816

REACTIONS (2)
  - Incorrect dosage administered [Not Recovered/Not Resolved]
  - Device leakage [Unknown]
